FAERS Safety Report 7121828-3 (Version None)
Quarter: 2010Q4

REPORT INFORMATION
  Report Type: 
  Country: None (occurrence: None)
  Receive Date: 20101124
  Receipt Date: 20101117
  Transmission Date: 20110411
  Serious: Yes (Other)
  Sender: FDA-Public Use
  Company Number: PHHY2010JP68714

PATIENT
  Age: 50 Year
  Sex: Female

DRUGS (4)
  1. SIMULECT [Suspect]
     Indication: LIVER TRANSPLANT
     Dosage: 20 MG
     Route: 042
  2. CYCLOSPORINE [Suspect]
     Indication: LIVER TRANSPLANT
     Dosage: UNK
  3. CELLCEPT [Concomitant]
     Indication: LIVER TRANSPLANT
  4. METHYLPREDNISOLONE [Concomitant]
     Indication: LIVER TRANSPLANT

REACTIONS (5)
  - HEPATITIS C [None]
  - HEPATITIS C RNA INCREASED [None]
  - PANCYTOPENIA [None]
  - THROMBOCYTOPENIA [None]
  - TRANSAMINASES INCREASED [None]
